FAERS Safety Report 8958889 (Version 1)
Quarter: 2012Q4

REPORT INFORMATION
  Report Type: 
  Country: IT (occurrence: IT)
  Receive Date: 20121212
  Receipt Date: 20121212
  Transmission Date: 20130627
  Serious: Yes (Hospitalization)
  Sender: FDA-Public Use
  Company Number: IT-MYLANLABS-2012S1024867

PATIENT
  Age: 79 Year
  Sex: Male

DRUGS (7)
  1. FUROSEMIDE [Suspect]
     Indication: BLOOD PRESSURE INCREASED
     Dates: start: 20110101, end: 20121002
  2. KCL [Suspect]
     Indication: HYPOKALAEMIA
     Route: 048
     Dates: start: 20110101, end: 20121002
  3. ALDACTONE [Suspect]
     Indication: HYPERTENSION
     Route: 048
     Dates: start: 20110101, end: 20121002
  4. BISOPROLOL HEMIFUMARATE [Suspect]
     Indication: HYPERTENSION
     Route: 048
     Dates: start: 20110101, end: 20121002
  5. CARDIOASPIRIN [Concomitant]
     Indication: MYOCARDIAL ISCHAEMIA
  6. COUMADINE [Concomitant]
     Indication: ATRIAL FIBRILLATION
  7. PANTORC [Concomitant]
     Indication: PRODUCT USED FOR UNKNOWN INDICATION

REACTIONS (2)
  - Hyperkalaemia [Recovering/Resolving]
  - Renal failure acute [Recovering/Resolving]
